FAERS Safety Report 10011494 (Version 1)
Quarter: 2014Q1

REPORT INFORMATION
  Report Type: Spontaneous
  Country: FR (occurrence: FR)
  Receive Date: 20140314
  Receipt Date: 20140314
  Transmission Date: 20141002
  Serious: Yes (Other)
  Sender: FDA-Public Use
  Company Number: FR-TEVA-467167ISR

PATIENT
  Age: 61 Year
  Sex: Male

DRUGS (2)
  1. FLUDARABINE [Suspect]
     Indication: LEUKAEMIA
     Route: 065
  2. RITUXIMAB [Suspect]
     Indication: LEUKAEMIA
     Route: 065

REACTIONS (2)
  - Drug-induced liver injury [Unknown]
  - Hepatic necrosis [Unknown]
